FAERS Safety Report 8089402-2 (Version None)
Quarter: 2012Q1

REPORT INFORMATION
  Report Type: 
  Country: None (occurrence: None)
  Receive Date: 20120128
  Receipt Date: 20110620
  Transmission Date: 20120608
  Serious: No
  Sender: FDA-Public Use
  Company Number: US-ABBOTT-11P-163-0724881-00

PATIENT
  Sex: Female
  Weight: 54.48 kg

DRUGS (3)
  1. HUMIRA [Suspect]
     Indication: RHEUMATOID ARTHRITIS
     Dates: start: 20050101
  2. HUMIRA [Suspect]
     Indication: PSORIASIS
     Dates: start: 20090101
  3. CELEBREX [Concomitant]
     Indication: RHEUMATOID ARTHRITIS

REACTIONS (4)
  - DRUG DOSE OMISSION [None]
  - COLITIS MICROSCOPIC [None]
  - BACK PAIN [None]
  - MEDICATION ERROR [None]
